FAERS Safety Report 16899798 (Version 4)
Quarter: 2022Q1

REPORT INFORMATION
  Report Type: Spontaneous
  Country: CA (occurrence: CA)
  Receive Date: 20191009
  Receipt Date: 20220218
  Transmission Date: 20220423
  Serious: Yes (Hospitalization, Other)
  Sender: FDA-Public Use
  Company Number: CA-GLAXOSMITHKLINE-CA2019AMR178680

PATIENT
  Age: 62 Year
  Sex: Female

DRUGS (16)
  1. PANTOPRAZOLE [Suspect]
     Active Substance: PANTOPRAZOLE
     Indication: Gastrooesophageal reflux disease
     Dosage: 40 MG, QD
  2. VENTOLIN [Suspect]
     Active Substance: ALBUTEROL SULFATE
     Indication: Wheezing
     Dosage: UNK
  3. VENTOLIN [Suspect]
     Active Substance: ALBUTEROL SULFATE
     Indication: Chest discomfort
  4. BUDESONIDE [Suspect]
     Active Substance: BUDESONIDE
     Indication: Product used for unknown indication
     Dosage: UNK, BID
  5. BUDESONIDE [Suspect]
     Active Substance: BUDESONIDE
     Dosage: UNK
  6. NUCALA [Suspect]
     Active Substance: MEPOLIZUMAB
     Indication: Asthma
     Dosage: 100 MG
     Route: 042
  7. CETIRIZINE HYDROCHLORIDE [Suspect]
     Active Substance: CETIRIZINE HYDROCHLORIDE
     Indication: Product used for unknown indication
     Dosage: 10 MG, QD
  8. SINGULAIR [Suspect]
     Active Substance: MONTELUKAST SODIUM
     Indication: Product used for unknown indication
     Dosage: UNK
  9. VALTREX [Suspect]
     Active Substance: VALACYCLOVIR HYDROCHLORIDE
     Indication: Product used for unknown indication
     Dosage: 500 MG, QD
     Route: 048
  10. ZOPICLONE [Suspect]
     Active Substance: ZOPICLONE
     Indication: Product used for unknown indication
     Dosage: 3.75 MG, QD
  11. BERINERT [Suspect]
     Active Substance: HUMAN C1-ESTERASE INHIBITOR
     Indication: Product used for unknown indication
     Dosage: 1000 DF
     Route: 042
  12. IPRATROPIUM [Suspect]
     Active Substance: IPRATROPIUM
     Indication: Product used for unknown indication
     Dosage: 2 DF, QID
  13. IPRATROPIUM [Suspect]
     Active Substance: IPRATROPIUM
     Dosage: 2 DF
  14. SPIRIVA [Suspect]
     Active Substance: TIOTROPIUM BROMIDE MONOHYDRATE
     Indication: Product used for unknown indication
     Dosage: UNK
  15. SYMBICORT [Suspect]
     Active Substance: BUDESONIDE\FORMOTEROL FUMARATE DIHYDRATE
     Indication: Product used for unknown indication
     Dosage: 8 DF, QD, POWDER
  16. SYMBICORT [Suspect]
     Active Substance: BUDESONIDE\FORMOTEROL FUMARATE DIHYDRATE
     Dosage: 8 MG, QD

REACTIONS (20)
  - Adverse drug reaction [Recovering/Resolving]
  - Asthma [Recovering/Resolving]
  - Blood immunoglobulin E increased [Recovering/Resolving]
  - Chest discomfort [Recovering/Resolving]
  - Chronic sinusitis [Recovering/Resolving]
  - Cough [Recovering/Resolving]
  - Dysphonia [Recovering/Resolving]
  - Dyspnoea [Recovering/Resolving]
  - Emotional distress [Recovering/Resolving]
  - Eosinophilia [Recovering/Resolving]
  - Ill-defined disorder [Recovering/Resolving]
  - Laryngeal stenosis [Recovering/Resolving]
  - Loss of personal independence in daily activities [Recovering/Resolving]
  - Middle insomnia [Recovering/Resolving]
  - Muscle spasms [Recovering/Resolving]
  - Obstructive airways disorder [Recovering/Resolving]
  - Sinus disorder [Recovering/Resolving]
  - Skin lesion [Recovering/Resolving]
  - Vocal cord dysfunction [Recovering/Resolving]
  - Wheezing [Recovering/Resolving]
